FAERS Safety Report 6338555-2 (Version None)
Quarter: 2009Q3

REPORT INFORMATION
  Report Type: 
  Country: None (occurrence: None)
  Receive Date: 20090901
  Receipt Date: 20090820
  Transmission Date: 20100115
  Serious: Yes (Hospitalization)
  Sender: FDA-Public Use
  Company Number: ADR16942009

PATIENT
  Age: 72 Year
  Sex: Female

DRUGS (2)
  1. ALENDRONIC ACID (MFR: UNKNOWN) [Suspect]
     Indication: FRACTURE
     Dosage: 70 MG, ORAL
     Route: 048
     Dates: end: 20090803
  2. CALCICHEW D3 [Concomitant]

REACTIONS (4)
  - BONE PAIN [None]
  - DRUG INEFFECTIVE [None]
  - FALL [None]
  - FRACTURE [None]
